FAERS Safety Report 5128929-X (Version None)
Quarter: 2006Q4

REPORT INFORMATION
  Report Type: 
  Country: None (occurrence: None)
  Receive Date: 20061011
  Receipt Date: 20060926
  Transmission Date: 20070319
  Serious: Yes (Hospitalization, Other)
  Sender: FDA-Public Use
  Company Number: 2006AL002913

PATIENT

DRUGS (1)
  1. PRENATAL PLUS W/ 27 MG IRON TABLETS (ATLLC) [Suspect]

REACTIONS (1)
  - ACCIDENTAL DRUG INTAKE BY CHILD [None]
